FAERS Safety Report 23764473 (Version 1)
Quarter: 2024Q2

REPORT INFORMATION
  Report Type: Spontaneous
  Country: US (occurrence: US)
  Receive Date: 20240420
  Receipt Date: 20240420
  Transmission Date: 20240716
  Serious: No
  Sender: FDA-Public Use
  Company Number: US-HALEON-2167510

PATIENT
  Age: 24 Year
  Sex: Male

DRUGS (1)
  1. SENSODYNE ADVANCED WHITENING [Suspect]
     Active Substance: POTASSIUM NITRATE\SODIUM FLUORIDE
     Indication: Product used for unknown indication
     Dosage: 3 - APPLICATION (AP)
     Dates: start: 20240403, end: 20240405

REACTIONS (5)
  - Tongue pruritus [Unknown]
  - Oral mucosal exfoliation [Unknown]
  - Gingival swelling [Unknown]
  - Lip dry [Unknown]
  - Dermatitis contact [Unknown]
